FAERS Safety Report 9468885 (Version 3)
Quarter: 2013Q3

REPORT INFORMATION
  Report Type: Spontaneous
  Country: US (occurrence: None)
  Receive Date: 20130816
  Receipt Date: 20130828
  Transmission Date: 20140515
  Serious: Yes (Hospitalization)
  Sender: FDA-Public Use
  Company Number: JPI-P-034318

PATIENT
  Age: 20 Year
  Sex: Male
  Weight: 111.13 kg

DRUGS (6)
  1. XYREM [Suspect]
     Indication: SOMNOLENCE
     Dosage: 4.5 GM (2.25 GM, 2 IN 1 D)
     Route: 048
     Dates: start: 20130716, end: 20130729
  2. XYREM [Suspect]
     Indication: NARCOLEPSY
     Dosage: 4.5 GM (2.25 GM, 2 IN 1 D)
     Route: 048
     Dates: start: 20130716, end: 20130729
  3. QUETIAPINE FUMARATE [Concomitant]
  4. CETIRIZINE HYDROCHLORIDE [Concomitant]
  5. LAMOTRIGINE [Concomitant]
  6. PROTRIPTYLINE [Concomitant]

REACTIONS (3)
  - Migraine [None]
  - Initial insomnia [None]
  - Somnolence [None]
